FAERS Safety Report 7378646-0 (Version None)
Quarter: 2011Q1

REPORT INFORMATION
  Report Type: 
  Country: None (occurrence: None)
  Receive Date: 20110328
  Receipt Date: 20110315
  Transmission Date: 20110831
  Serious: Yes (Other)
  Sender: FDA-Public Use
  Company Number: US-JNJFOC-20110306948

PATIENT
  Sex: Male
  Weight: 107.96 kg

DRUGS (3)
  1. REMICADE [Suspect]
     Indication: ANKYLOSING SPONDYLITIS
     Route: 042
  2. LISINOPRIL [Concomitant]
     Indication: BLOOD PRESSURE
     Route: 048
  3. REMICADE [Suspect]
     Route: 042

REACTIONS (5)
  - RESPIRATORY DISORDER [None]
  - RASH ERYTHEMATOUS [None]
  - GASTROINTESTINAL DISORDER [None]
  - GASTRIC DISORDER [None]
  - EXPOSURE TO COMMUNICABLE DISEASE [None]
